FAERS Safety Report 18942589 (Version 3)
Quarter: 2021Q2

REPORT INFORMATION
  Report Type: Report from Study
  Country: US (occurrence: US)
  Receive Date: 20210225
  Receipt Date: 20210511
  Transmission Date: 20210717
  Serious: Yes (Hospitalization)
  Sender: FDA-Public Use
  Company Number: US-SEATTLE GENETICS-2021SGN00293

PATIENT
  Sex: Female

DRUGS (1)
  1. TUCATINIB [Suspect]
     Active Substance: TUCATINIB
     Indication: BREAST CANCER FEMALE
     Dosage: UNK
     Route: 048

REACTIONS (9)
  - Nausea [Unknown]
  - Hospice care [Unknown]
  - Product dose omission issue [Unknown]
  - Vomiting [Unknown]
  - Hospitalisation [Unknown]
  - Rash [Unknown]
  - Dehydration [Unknown]
  - Anxiety [Unknown]
  - Headache [Unknown]
